FAERS Safety Report 7476424-5 (Version None)
Quarter: 2011Q2

REPORT INFORMATION
  Report Type: 
  Country: None (occurrence: None)
  Receive Date: 20110512
  Receipt Date: 20110505
  Transmission Date: 20111010
  Serious: Yes (Other)
  Sender: FDA-Public Use
  Company Number: FR-CEPHALON-2011001208

PATIENT
  Sex: Male

DRUGS (6)
  1. DURAGESIC-100 [Concomitant]
     Indication: FACIAL NEURALGIA
  2. VERSATIS [Concomitant]
  3. LYRICA [Concomitant]
  4. ACTIQ [Suspect]
     Indication: FACIAL NEURALGIA
     Route: 002
  5. ACTIQ [Suspect]
     Route: 002
  6. RIVOTRIL [Concomitant]

REACTIONS (4)
  - DRUG DEPENDENCE [None]
  - DRUG PRESCRIBING ERROR [None]
  - DRUG INEFFECTIVE [None]
  - DRUG ABUSE [None]
